FAERS Safety Report 14698551 (Version 2)
Quarter: 2018Q2

REPORT INFORMATION
  Report Type: Report from Study
  Country: NL (occurrence: NL)
  Receive Date: 20180330
  Receipt Date: 20180409
  Transmission Date: 20180711
  Serious: Yes (Hospitalization)
  Sender: FDA-Public Use
  Company Number: NL-TAKEDA-2018TUS007665

PATIENT
  Sex: Male

DRUGS (3)
  1. ADALIMUMAB [Concomitant]
     Active Substance: ADALIMUMAB
     Dosage: UNK
     Dates: end: 20180314
  2. VEDOLIZUMAB [Suspect]
     Active Substance: VEDOLIZUMAB
     Indication: PRODUCT USED FOR UNKNOWN INDICATION
     Dosage: UNK
     Route: 042
     Dates: start: 20180321
  3. PENTASA [Concomitant]
     Active Substance: MESALAMINE
     Dosage: UNK

REACTIONS (1)
  - Clostridium difficile infection [Recovered/Resolved]

NARRATIVE: CASE EVENT DATE: 20180322
